FAERS Safety Report 6075026-5 (Version None)
Quarter: 2009Q1

REPORT INFORMATION
  Report Type: 
  Country: None (occurrence: None)
  Receive Date: 20090212
  Receipt Date: 20090209
  Transmission Date: 20090719
  Serious: Yes (Hospitalization, Other)
  Sender: FDA-Public Use
  Company Number: US-BAYER-200838053NA

PATIENT
  Age: 26 Year
  Sex: Female

DRUGS (2)
  1. MIRENA [Suspect]
     Indication: CONTRACEPTION
     Route: 015
     Dates: start: 20051213, end: 20081020
  2. ULTRAM [Concomitant]
     Indication: PAIN
     Route: 048

REACTIONS (1)
  - ECTOPIC PREGNANCY WITH INTRAUTERINE DEVICE [None]
